FAERS Safety Report 12411196 (Version 1)
Quarter: 2016Q2

REPORT INFORMATION
  Report Type: Spontaneous
  Country: US (occurrence: None)
  Receive Date: 20160526
  Receipt Date: 20160526
  Transmission Date: 20160815
  Serious: No
  Sender: FDA-Public Use
  Company Number: None

PATIENT
  Age: 62 Year
  Sex: Female

DRUGS (2)
  1. NEULASTA [Suspect]
     Active Substance: PEGFILGRASTIM
     Indication: CHEMOTHERAPY
     Dosage: 6MG/0.6 ML PFS EVERY 3 WKS 1DOSE SC
     Route: 058
     Dates: start: 20160506
  2. NEULASTA [Suspect]
     Active Substance: PEGFILGRASTIM
     Indication: NEOPLASM MALIGNANT
     Dosage: 6MG/0.6 ML PFS EVERY 3 WKS 1DOSE SC
     Route: 058
     Dates: start: 20160506

REACTIONS (2)
  - Back pain [None]
  - Arthralgia [None]

NARRATIVE: CASE EVENT DATE: 2016
